FAERS Safety Report 19081982 (Version 3)
Quarter: 2021Q3

REPORT INFORMATION
  Report Type: Report from Study
  Country: US (occurrence: US)
  Receive Date: 20210401
  Receipt Date: 20210907
  Transmission Date: 20211014
  Serious: Yes (Other)
  Sender: FDA-Public Use
  Company Number: NVSC2021US070503

PATIENT
  Sex: Female

DRUGS (1)
  1. XIIDRA [Suspect]
     Active Substance: LIFITEGRAST
     Indication: DRY EYE
     Dosage: 1 DRP, BID (BOTH EYES, 12 HOURS APART)
     Route: 047

REACTIONS (3)
  - Blindness [Unknown]
  - Neoplasm malignant [Unknown]
  - Eye disorder [Unknown]
